FAERS Safety Report 13347358 (Version 1)
Quarter: 2017Q1

REPORT INFORMATION
  Report Type: Spontaneous
  Country: DE (occurrence: DE)
  Receive Date: 20170317
  Receipt Date: 20170317
  Transmission Date: 20170428
  Serious: Yes (Other)
  Sender: FDA-Public Use
  Company Number: DE-FRESENIUS KABI-FK201701981

PATIENT
  Age: 61 Year
  Sex: Male

DRUGS (6)
  1. CISPLATIN (MANUFACTURER UNKNOWN) [Suspect]
     Active Substance: CISPLATIN
     Indication: METASTASES TO LUNG
  2. GEFITINIB [Suspect]
     Active Substance: GEFITINIB
     Indication: METASTASES TO LUNG
  3. GEMCITABINE [Suspect]
     Active Substance: GEMCITABINE\GEMCITABINE HYDROCHLORIDE
     Indication: BLADDER TRANSITIONAL CELL CARCINOMA
     Route: 065
     Dates: start: 20050726, end: 20051116
  4. GEMCITABINE [Suspect]
     Active Substance: GEMCITABINE\GEMCITABINE HYDROCHLORIDE
     Indication: METASTASES TO LUNG
  5. GEFITINIB [Suspect]
     Active Substance: GEFITINIB
     Indication: BLADDER TRANSITIONAL CELL CARCINOMA
     Route: 048
  6. CISPLATIN (MANUFACTURER UNKNOWN) [Suspect]
     Active Substance: CISPLATIN
     Indication: BLADDER TRANSITIONAL CELL CARCINOMA
     Route: 065
     Dates: start: 20050726, end: 20051116

REACTIONS (5)
  - Discomfort [Unknown]
  - Rash [Unknown]
  - Leukopenia [Unknown]
  - Nausea [Recovered/Resolved]
  - Dyspnoea [Unknown]
